FAERS Safety Report 7018651-7 (Version None)
Quarter: 2010Q3

REPORT INFORMATION
  Report Type: 
  Country: None (occurrence: None)
  Receive Date: 20100928
  Receipt Date: 20100924
  Transmission Date: 20110219
  Serious: Yes (Hospitalization, Other)
  Sender: FDA-Public Use
  Company Number: US-MERCK-0911USA02010

PATIENT
  Age: 67 Year
  Sex: Female

DRUGS (4)
  1. FOSAMAX [Suspect]
     Indication: OSTEOPOROSIS
     Route: 048
     Dates: start: 20050211, end: 20080920
  2. PIROXICAM [Concomitant]
     Indication: INFLAMMATION
     Route: 065
     Dates: start: 20050211
  3. PREVACID [Concomitant]
     Indication: DYSPEPSIA
     Route: 065
     Dates: start: 20050101
  4. PROTONIX [Concomitant]
     Indication: DYSPEPSIA
     Route: 065
     Dates: start: 20050101

REACTIONS (10)
  - ABSCESS [None]
  - ARTHRITIS [None]
  - BACK DISORDER [None]
  - EDENTULOUS [None]
  - HYPERTENSION [None]
  - IMPAIRED HEALING [None]
  - INSOMNIA [None]
  - ORAL INFECTION [None]
  - OSTEONECROSIS OF JAW [None]
  - TOOTH EXTRACTION [None]
